FAERS Safety Report 12535737 (Version 1)
Quarter: 2016Q3

REPORT INFORMATION
  Report Type: Spontaneous
  Country: US (occurrence: None)
  Receive Date: 20160706
  Receipt Date: 20160706
  Transmission Date: 20161109
  Serious: Yes (Disabling, Other)
  Sender: FDA-Public Use
  Company Number: None

PATIENT
  Age: 56 Year
  Sex: Female
  Weight: 72.58 kg

DRUGS (6)
  1. NORDIC NATURALS GUMMY VITAMINS [Concomitant]
  2. BREO ELLIPTA [Suspect]
     Active Substance: FLUTICASONE FUROATE\VILANTEROL TRIFENATATE
     Indication: ASTHMA
     Dosage: 1 PUFF(S) ONCE A DAY INHALATION
     Route: 055
     Dates: start: 20160213, end: 20160703
  3. COMBIVENT [Concomitant]
     Active Substance: ALBUTEROL SULFATE\IPRATROPIUM BROMIDE
  4. BENADRYL [Concomitant]
     Active Substance: DIPHENHYDRAMINE HYDROCHLORIDE
  5. VITAMIN D [Concomitant]
     Active Substance: CHOLECALCIFEROL
  6. IPUBROMIDE [Concomitant]

REACTIONS (14)
  - Dysuria [None]
  - Dizziness [None]
  - Headache [None]
  - Presyncope [None]
  - Eye irritation [None]
  - Vertigo [None]
  - Vomiting [None]
  - Impaired healing [None]
  - Asthenia [None]
  - Dysphonia [None]
  - Fatigue [None]
  - Heart rate abnormal [None]
  - Flushing [None]
  - Tremor [None]

NARRATIVE: CASE EVENT DATE: 20160703
